FAERS Safety Report 9126852 (Version 1)
Quarter: 2013Q1

REPORT INFORMATION
  Report Type: Spontaneous
  Country: GB (occurrence: GB)
  Receive Date: 20130228
  Receipt Date: 20130228
  Transmission Date: 20140127
  Serious: Yes (Other)
  Sender: FDA-Public Use
  Company Number: GB-MPIJNJ-2013-01425

PATIENT
  Sex: 0

DRUGS (13)
  1. VELCADE [Suspect]
     Indication: PLASMA CELL MYELOMA
     Dosage: UNK
     Route: 065
     Dates: start: 20100203
  2. CYCLOPHOSPHAMIDE [Concomitant]
     Dosage: UNK
     Dates: start: 20090520, end: 20091102
  3. CYCLOPHOSPHAMIDE [Concomitant]
     Dosage: UNK
     Dates: start: 20100203
  4. CYCLOPHOSPHAMIDE [Concomitant]
     Dosage: UNK
     Dates: start: 20101125
  5. THALIDOMIDE [Concomitant]
     Dosage: UNK
     Dates: start: 20090520
  6. DEXAMETHASONE [Concomitant]
     Indication: PLASMA CELL MYELOMA
     Dosage: UNK
     Dates: start: 20090520, end: 20091102
  7. DEXAMETHASONE [Concomitant]
     Dosage: UNK
     Dates: start: 20100203
  8. DEXAMETHASONE [Concomitant]
     Dosage: UNK
     Dates: start: 20101125
  9. REVLIMID [Concomitant]
     Dosage: UNK
     Dates: start: 20101125
  10. REVLIMID [Concomitant]
     Dosage: UNK
     Dates: start: 201106
  11. MELPHALAN [Concomitant]
     Dosage: UNK
     Dates: start: 201201
  12. METHYLPREDNISOLONE [Concomitant]
     Dosage: UNK
     Dates: start: 201203
  13. LOMUSTINE [Concomitant]
     Dosage: UNK
     Dates: start: 201203

REACTIONS (2)
  - Plasmacytoma [Not Recovered/Not Resolved]
  - Disease progression [Not Recovered/Not Resolved]
